FAERS Safety Report 8855527 (Version 2)
Quarter: 2013Q3

REPORT INFORMATION
  Report Type: Spontaneous
  Country: US (occurrence: US)
  Receive Date: 20121023
  Receipt Date: 20130930
  Transmission Date: 20140515
  Serious: No
  Sender: FDA-Public Use
  Company Number: US-AMGEN-USASP2012059926

PATIENT
  Age: 28 Year
  Sex: Female
  Weight: 79.37 kg

DRUGS (1)
  1. ENBREL [Suspect]
     Indication: PSORIATIC ARTHROPATHY
     Dosage: 25 MG, 2 TIMES/WK
     Route: 058
     Dates: start: 20120601

REACTIONS (2)
  - Procedural complication [Recovered/Resolved]
  - Psoriatic arthropathy [Recovered/Resolved]
